FAERS Safety Report 4710990-5 (Version None)
Quarter: 2005Q3

REPORT INFORMATION
  Report Type: 
  Country: None (occurrence: None)
  Receive Date: 20050711
  Receipt Date: 20050704
  Transmission Date: 20060218
  Serious: Yes (Other)
  Sender: FDA-Public Use
  Company Number: PHNR2005AU01044

PATIENT
  Age: 29 Year
  Sex: Female

DRUGS (3)
  1. TEGRETOL [Suspect]
     Dosage: 800 MG, QD
     Route: 048
  2. IMPLANON [Suspect]
     Indication: CONTRACEPTION
  3. ZOLOFT [Concomitant]
     Dosage: 50 MG, UNK
     Route: 048

REACTIONS (4)
  - DRUG EXPOSURE DURING PREGNANCY [None]
  - DRUG INTERACTION [None]
  - PREGNANCY WITH IMPLANT CONTRACEPTIVE [None]
  - UNINTENDED PREGNANCY [None]
